FAERS Safety Report 23443776 (Version 3)
Quarter: 2024Q1

REPORT INFORMATION
  Report Type: Spontaneous
  Country: JP (occurrence: JP)
  Receive Date: 20240125
  Receipt Date: 20240226
  Transmission Date: 20240409
  Serious: Yes (Death, Other)
  Sender: FDA-Public Use
  Company Number: JP-BRISTOL-MYERS SQUIBB COMPANY-2024-012362

PATIENT
  Age: 55 Year
  Sex: Male
  Weight: 75.4 kg

DRUGS (15)
  1. REVLIMID [Suspect]
     Active Substance: LENALIDOMIDE
     Indication: Follicular lymphoma
     Route: 048
     Dates: start: 20230706, end: 20230723
  2. REVLIMID [Suspect]
     Active Substance: LENALIDOMIDE
     Route: 048
     Dates: start: 20230804, end: 20230817
  3. REVLIMID [Suspect]
     Active Substance: LENALIDOMIDE
     Route: 048
     Dates: start: 20230901, end: 20230916
  4. REVLIMID [Suspect]
     Active Substance: LENALIDOMIDE
     Route: 048
     Dates: start: 20230929, end: 20231008
  5. LENADEX [Suspect]
     Active Substance: DEXAMETHASONE ACETATE
     Indication: Follicular lymphoma
  6. GEMCITABINE [Concomitant]
     Active Substance: GEMCITABINE
     Indication: Follicular lymphoma
  7. RITUXIMAB [Concomitant]
     Active Substance: RITUXIMAB
     Indication: Follicular lymphoma
     Dates: start: 20230713, end: 20230713
  8. RITUXIMAB [Concomitant]
     Active Substance: RITUXIMAB
     Dates: start: 20230720, end: 20230720
  9. RITUXIMAB [Concomitant]
     Active Substance: RITUXIMAB
     Dates: start: 20230727, end: 20230727
  10. RITUXIMAB [Concomitant]
     Active Substance: RITUXIMAB
     Dates: start: 20230804, end: 20230804
  11. RITUXIMAB [Concomitant]
     Active Substance: RITUXIMAB
     Dates: start: 20230901, end: 20230901
  12. RITUXIMAB [Concomitant]
     Active Substance: RITUXIMAB
     Dates: start: 20230929, end: 20230929
  13. RITUXIMAB [Concomitant]
     Active Substance: RITUXIMAB
     Dates: start: 20230706, end: 20230706
  14. ASPIRIN [Concomitant]
     Active Substance: ASPIRIN
     Indication: Prophylaxis
     Route: 048
     Dates: start: 20230711, end: 20231008
  15. SULFAMETHOXAZOLE\TRIMETHOPRIM [Concomitant]
     Active Substance: SULFAMETHOXAZOLE\TRIMETHOPRIM
     Indication: Prophylaxis
     Route: 048
     Dates: start: 20230707, end: 20231006

REACTIONS (2)
  - Chronic kidney disease [Unknown]
  - Malignant neoplasm progression [Fatal]
